FAERS Safety Report 5727100-8 (Version None)
Quarter: 2008Q2

REPORT INFORMATION
  Report Type: 
  Country: None (occurrence: None)
  Receive Date: 20080505
  Receipt Date: 20080423
  Transmission Date: 20081010
  Serious: Yes (Hospitalization, Other)
  Sender: FDA-Public Use
  Company Number: JP-ELI_LILLY_AND_COMPANY-JP200804006341

PATIENT
  Sex: Female
  Weight: 55 kg

DRUGS (4)
  1. GEMCITABINE HCL [Suspect]
     Indication: GALLBLADDER CANCER NON-RESECTABLE
     Dosage: 1200 MG, UNK
     Route: 042
     Dates: start: 20070821, end: 20070828
  2. TS 1 [Concomitant]
     Indication: GALLBLADDER CANCER NON-RESECTABLE
     Dosage: 100 MG, DAILY (1/D)
     Route: 048
     Dates: start: 20070211, end: 20070903
  3. KYTRIL [Concomitant]
     Indication: PROPHYLAXIS OF NAUSEA AND VOMITING
     Dosage: 3 MG, DAILY (1/D)
     Route: 042
     Dates: start: 20070215, end: 20070828
  4. DECADRON [Concomitant]
     Indication: PROPHYLAXIS
     Dosage: 8 MG, DAILY (1/D)
     Route: 042
     Dates: start: 20070821, end: 20070828

REACTIONS (5)
  - FLUSHING [None]
  - NEUTROPHIL COUNT DECREASED [None]
  - PLATELET COUNT DECREASED [None]
  - STOMATITIS [None]
  - WHITE BLOOD CELL COUNT DECREASED [None]
